FAERS Safety Report 20796182 (Version 2)
Quarter: 2025Q4

REPORT INFORMATION
  Report Type: Other
  Country: EU (occurrence: EU)
  Receive Date: 20220506
  Receipt Date: 20251029
  Transmission Date: 20260118
  Serious: Yes (Death, Hospitalization, Other)
  Sender: ASPEN
  Company Number: None

PATIENT

DRUGS (4)
  1. DEXAMETHASONE [Suspect]
     Active Substance: DEXAMETHASONE
     Indication: Product used for unknown indication
     Dosage: UNK
     Route: 065
     Dates: start: 20210117
  2. MYCOPHENOLATE MOFETIL [Suspect]
     Active Substance: MYCOPHENOLATE MOFETIL
     Indication: Product used for unknown indication
     Dosage: 500MG TWICE DAILY
     Route: 065
  3. RITUXIMAB [Suspect]
     Active Substance: RITUXIMAB
     Indication: Transplant rejection
     Dosage: THE PATIENT WAS PRESCRIBED IVIG 120G
     Route: 042
  4. REMDESIVIR [Suspect]
     Active Substance: REMDESIVIR
     Indication: Product used for unknown indication
     Dosage: UNK
     Route: 065
     Dates: start: 20210117

REACTIONS (5)
  - Superinfection bacterial [Fatal]
  - Septic shock [Fatal]
  - COVID-19 [Fatal]
  - Pseudomonas infection [Fatal]
  - Aspergillus infection [Fatal]

NARRATIVE: CASE EVENT DATE: 20210101
